FAERS Safety Report 17151343 (Version 4)
Quarter: 2022Q4

REPORT INFORMATION
  Report Type: Spontaneous
  Country: US (occurrence: US)
  Receive Date: 20191213
  Receipt Date: 20221209
  Transmission Date: 20230112
  Serious: Yes (Other)
  Sender: FDA-Public Use
  Company Number: US-PFIZER INC-2019539245

PATIENT
  Age: 65 Year
  Sex: Female

DRUGS (1)
  1. XELJANZ XR [Suspect]
     Active Substance: TOFACITINIB CITRATE
     Dosage: 11 MG,

REACTIONS (7)
  - Type 2 diabetes mellitus [Unknown]
  - Respiratory tract infection [Unknown]
  - Infection [Unknown]
  - Pain [Unknown]
  - Illness [Unknown]
  - Bone density decreased [Unknown]
  - Urinary tract infection [Unknown]
